FAERS Safety Report 8277175-X (Version None)
Quarter: 2012Q2

REPORT INFORMATION
  Report Type: 
  Country: None (occurrence: None)
  Receive Date: 20120412
  Receipt Date: 20120404
  Transmission Date: 20120825
  Serious: Yes (Other)
  Sender: FDA-Public Use
  Company Number: US-BAYER-2012-023283

PATIENT
  Age: 38 Year
  Sex: Female
  Weight: 58.05 kg

DRUGS (3)
  1. MIRENA [Suspect]
     Indication: CONTRACEPTION
  2. MIRENA [Suspect]
     Indication: MENSTRUATION IRREGULAR
     Dosage: 20 MCG/24HR, CONT
     Route: 015
     Dates: start: 20111223, end: 20120127
  3. ADDERALL XR 10 [Concomitant]
     Dosage: 10 MG, BID
     Dates: start: 20090101, end: 20120201

REACTIONS (7)
  - VAGINITIS BACTERIAL [None]
  - GENITAL HAEMORRHAGE [None]
  - ADNEXA UTERI PAIN [None]
  - BACTERIAL INFECTION [None]
  - ADVERSE EVENT [None]
  - ABDOMINAL PAIN [None]
  - UTERINE PAIN [None]
